FAERS Safety Report 9646608 (Version 2)
Quarter: 2013Q4

REPORT INFORMATION
  Report Type: Spontaneous
  Country: US (occurrence: US)
  Receive Date: 20131026
  Receipt Date: 20131114
  Transmission Date: 20140711
  Serious: Yes (Death)
  Sender: FDA-Public Use
  Company Number: US-ROCHE-1295041

PATIENT
  Age: 57 Year
  Sex: Female
  Weight: 64.01 kg

DRUGS (16)
  1. AVASTIN [Suspect]
     Indication: PRODUCT USED FOR UNKNOWN INDICATION
     Dosage: LAST DOSE PRIOR TO SAE ON 16/APR/2012
     Route: 065
  2. XELODA [Suspect]
     Indication: PRODUCT USED FOR UNKNOWN INDICATION
     Route: 065
  3. STIVARGA [Suspect]
     Indication: COLON CANCER
     Route: 065
  4. LEVOTHYROXINE [Concomitant]
     Route: 048
  5. MS CONTIN [Concomitant]
     Indication: METASTATIC NEOPLASM
     Route: 048
  6. TRIAMTEREN [Concomitant]
     Route: 065
  7. VALTREX [Concomitant]
  8. GABAPENTIN [Concomitant]
     Route: 065
  9. DUROGESIC [Concomitant]
     Route: 065
  10. OXYCODONE [Concomitant]
     Dosage: 2-3 TABLETS (DF), 2-3 HOURS
     Route: 048
  11. TRAZODONE [Concomitant]
  12. FLUOXETINE [Concomitant]
     Route: 065
  13. HYDROCORTISONE [Concomitant]
     Route: 065
     Dates: start: 20120820, end: 20130204
  14. COMPAZINE [Concomitant]
     Route: 065
     Dates: start: 20120820, end: 20130302
  15. MAGNESIUM OXIDE [Concomitant]
     Route: 048
     Dates: start: 20121211, end: 20130302
  16. ERBITUX [Concomitant]

REACTIONS (4)
  - Pneumothorax [Fatal]
  - Metastases to liver [Fatal]
  - Metastases to lung [Fatal]
  - Colon cancer [Fatal]
